FAERS Safety Report 8880164 (Version 1)
Quarter: 2012Q4

REPORT INFORMATION
  Report Type: 
  Country: US (occurrence: US)
  Receive Date: 20121031
  Receipt Date: 20121031
  Transmission Date: 20130627
  Serious: No
  Sender: FDA-Public Use
  Company Number: US-ASTRAZENECA-2012SE29065

PATIENT
  Age: 46 Year
  Sex: Female

DRUGS (1)
  1. ZOMIG [Suspect]

REACTIONS (2)
  - Headache [Unknown]
  - Intentional drug misuse [Unknown]
